FAERS Safety Report 8364820-3 (Version None)
Quarter: 2012Q2

REPORT INFORMATION
  Report Type: 
  Country: None (occurrence: None)
  Receive Date: 20120516
  Receipt Date: 20120501
  Transmission Date: 20120825
  Serious: Yes (Other)
  Sender: FDA-Public Use
  Company Number: DK-WATSON-2012-08116

PATIENT
  Sex: Male
  Weight: 70 kg

DRUGS (3)
  1. BRILIQUE [Suspect]
     Indication: MYOCARDIAL ISCHAEMIA
     Dosage: 90 MG, BID
     Route: 048
     Dates: start: 20110923
  2. WARFARIN SODIUM [Suspect]
     Indication: PRODUCT USED FOR UNKNOWN INDICATION
     Dosage: UNKNOWN
     Route: 065
  3. ALENDRONATE SODIUM [Suspect]
     Indication: OSTEOPOROSIS
     Dosage: 70 MG, DAILY
     Route: 048
     Dates: start: 20120323, end: 20120416

REACTIONS (3)
  - RECTAL HAEMORRHAGE [None]
  - HAEMATURIA [None]
  - EPISTAXIS [None]
